FAERS Safety Report 21131633 (Version 1)
Quarter: 2022Q3

REPORT INFORMATION
  Report Type: Spontaneous
  Country: CN (occurrence: CN)
  Receive Date: 20220726
  Receipt Date: 20220726
  Transmission Date: 20221026
  Serious: Yes (Other)
  Sender: FDA-Public Use
  Company Number: CN-PFIZER INC-202200993541

PATIENT
  Age: 72 Year
  Sex: Male

DRUGS (4)
  1. DIFLUCAN [Suspect]
     Active Substance: FLUCONAZOLE
     Indication: Pneumonia cryptococcal
     Dosage: 4 CAPSULES IN THE MORNING AND 4 CAPSULES IN THE AFTERNOON
     Route: 048
  2. DIFLUCAN [Suspect]
     Active Substance: FLUCONAZOLE
     Dosage: 2 CAPSULES IN THE MORNING, 2 CAPSULES IN THE AFTERNOON
     Route: 048
     Dates: start: 20220718, end: 20220719
  3. DIFLUCAN [Suspect]
     Active Substance: FLUCONAZOLE
     Dosage: 3 CAPSULES IN THE MORNING AND 3 CAPSULES IN THE AFTERNOON
     Route: 048
     Dates: start: 20220720
  4. DIFLUCAN [Suspect]
     Active Substance: FLUCONAZOLE
     Dosage: 4 CAPSULES IN THE MORNING
     Route: 048
     Dates: start: 20220721

REACTIONS (4)
  - Hypoxia [Recovered/Resolved]
  - Ear discomfort [Recovered/Resolved]
  - Hypobarism [Recovered/Resolved]
  - Off label use [Unknown]

NARRATIVE: CASE EVENT DATE: 20220701
